FAERS Safety Report 17451185 (Version 1)
Quarter: 2020Q1

REPORT INFORMATION
  Report Type: Spontaneous
  Country: FR (occurrence: FR)
  Receive Date: 20200224
  Receipt Date: 20200224
  Transmission Date: 20200409
  Serious: Yes (Other)
  Sender: FDA-Public Use
  Company Number: FR-PFIZER INC-2020075009

PATIENT
  Age: 11 Year
  Sex: Female

DRUGS (1)
  1. ALPRAZOLAM. [Suspect]
     Active Substance: ALPRAZOLAM
     Dosage: UNK (NOT SPECIFIED)
     Route: 048
     Dates: start: 201711, end: 201804

REACTIONS (1)
  - Victim of chemical submission [Recovered/Resolved]

NARRATIVE: CASE EVENT DATE: 201711
